FAERS Safety Report 24792277 (Version 1)
Quarter: 2024Q4

REPORT INFORMATION
  Report Type: Report from Study
  Country: US (occurrence: US)
  Receive Date: 20241231
  Receipt Date: 20241231
  Transmission Date: 20250115
  Serious: Yes (Other)
  Sender: RANBAXY
  Company Number: US-SUN PHARMACEUTICAL INDUSTRIES LTD-2024R1-487110

PATIENT

DRUGS (6)
  1. PREDNISONE [Suspect]
     Active Substance: PREDNISONE
     Indication: Chemotherapy
     Dosage: 40 MILLIGRAM/SQ. METER, BID
     Route: 048
  2. BLEOMYCIN [Suspect]
     Active Substance: BLEOMYCIN SULFATE
     Indication: Chemotherapy
     Dosage: 5 INTERNATIONAL UNIT
     Route: 065
  3. CYCLOPHOSPHAMIDE [Suspect]
     Active Substance: CYCLOPHOSPHAMIDE
     Indication: Chemotherapy
     Dosage: 600 MILLIGRAM/SQ. METER
     Route: 065
  4. DOXORUBICIN [Suspect]
     Active Substance: DOXORUBICIN
     Indication: Chemotherapy
     Dosage: 25 MILLIGRAM/SQ. METER
     Route: 065
  5. ETOPOSIDE [Suspect]
     Active Substance: ETOPOSIDE
     Indication: Chemotherapy
     Dosage: 60 MILLIGRAM/SQ. METER
     Route: 065
  6. VINBLASTINE [Suspect]
     Active Substance: VINBLASTINE
     Indication: Chemotherapy
     Dosage: 6 MILLIGRAM/SQ. METER
     Route: 065

REACTIONS (1)
  - Disease progression [Unknown]
